FAERS Safety Report 20606294 (Version 2)
Quarter: 2022Q2

REPORT INFORMATION
  Report Type: 
  Country: US (occurrence: US)
  Receive Date: 20220317
  Receipt Date: 20220411
  Transmission Date: 20220721
  Serious: Yes (Hospitalization)
  Sender: FDA-Public Use
  Company Number: US-BIOCON-BCN-2022-000188

PATIENT
  Sex: Female

DRUGS (1)
  1. EVEROLIMUS [Suspect]
     Active Substance: EVEROLIMUS
     Indication: Brain neoplasm malignant
     Dosage: ONCE DAILY
     Route: 048
     Dates: start: 202110

REACTIONS (2)
  - Product substitution issue [Unknown]
  - Gait inability [Unknown]
